FAERS Safety Report 7707230 (Version 2)
Quarter: 2013Q4

REPORT INFORMATION
  Report Type: Spontaneous
  Country: US (occurrence: US)
  Receive Date: 20101214
  Receipt Date: 20131004
  Transmission Date: 20140711
  Serious: Yes (Hospitalization)
  Sender: FDA-Public Use
  Company Number: US-ASTRAZENECA-2009SE25769

PATIENT
  Age: 81 Year
  Sex: Female
  Weight: 81.6 kg

DRUGS (10)
  1. CRESTOR [Suspect]
     Indication: BLOOD CHOLESTEROL ABNORMAL
     Route: 048
     Dates: start: 2009
  2. CRESTOR [Suspect]
     Indication: BLOOD CHOLESTEROL ABNORMAL
     Route: 048
     Dates: start: 20110101
  3. CRESTOR [Suspect]
     Indication: BLOOD CHOLESTEROL ABNORMAL
     Route: 048
  4. HCTZ [Concomitant]
     Indication: BLOOD PRESSURE ABNORMAL
  5. BYSTOLIC [Concomitant]
     Indication: BLOOD PRESSURE ABNORMAL
  6. AMLODIPINE BESYLATE [Concomitant]
     Indication: BLOOD PRESSURE ABNORMAL
  7. TEGRETOL [Concomitant]
  8. VITAMIN [Concomitant]
  9. ASA [Concomitant]
  10. CO-Q-10 [Concomitant]

REACTIONS (4)
  - Cerebrovascular accident [Recovering/Resolving]
  - Limb discomfort [Unknown]
  - Melanocytic naevus [Unknown]
  - Headache [Unknown]
